FAERS Safety Report 8356745-4 (Version None)
Quarter: 2012Q2

REPORT INFORMATION
  Report Type: 
  Country: None (occurrence: None)
  Receive Date: 20120511
  Receipt Date: 20120511
  Transmission Date: 20120825
  Serious: Yes (Other)
  Sender: FDA-Public Use
  Company Number: None

PATIENT
  Age: 30 Year
  Sex: Female
  Weight: 82.5547 kg

DRUGS (2)
  1. LAMICTAL [Concomitant]
  2. QUETIAPINE [Suspect]
     Indication: BIPOLAR DISORDER
     Dosage: BY MOUTH 3 TIMES A DAY 1 WEEK ON GENERIC
     Route: 048

REACTIONS (3)
  - ABDOMINAL DISCOMFORT [None]
  - PAIN [None]
  - SOCIAL PROBLEM [None]
